FAERS Safety Report 10391710 (Version 2)
Quarter: 2014Q3

REPORT INFORMATION
  Report Type: Report from Study
  Country: GB (occurrence: GB)
  Receive Date: 20140818
  Receipt Date: 20140818
  Transmission Date: 20150326
  Serious: Yes (Death)
  Sender: FDA-Public Use
  Company Number: GB-ABBVIE-13P-167-1079910-00

PATIENT
  Sex: Male
  Weight: 67 kg

DRUGS (2)
  1. LEFLUNOMIDE. [Concomitant]
     Active Substance: LEFLUNOMIDE
     Indication: PRODUCT USED FOR UNKNOWN INDICATION
  2. HUMIRA [Suspect]
     Active Substance: ADALIMUMAB
     Indication: RHEUMATOID ARTHRITIS
     Route: 058
     Dates: start: 20101222, end: 20110124

REACTIONS (4)
  - Bronchiectasis [Fatal]
  - Squamous cell carcinoma [Fatal]
  - Chronic obstructive pulmonary disease [Fatal]
  - Rheumatoid arthritis [Fatal]
